FAERS Safety Report 23154918 (Version 1)
Quarter: 2023Q4

REPORT INFORMATION
  Report Type: Spontaneous
  Country: US (occurrence: None)
  Receive Date: 20231107
  Receipt Date: 20231107
  Transmission Date: 20240110
  Serious: Yes (Other)
  Sender: FDA-Public Use
  Company Number: None

PATIENT
  Age: 39 Year
  Sex: Male

DRUGS (1)
  1. CABOTEGRAVIR [Suspect]
     Active Substance: CABOTEGRAVIR
     Indication: High risk sexual behaviour
     Dosage: OTHER FREQUENCY : EVERY OTHER MONTH;?
     Route: 030

REACTIONS (3)
  - Muscle spasms [None]
  - Muscle spasms [None]
  - Injection related reaction [None]

NARRATIVE: CASE EVENT DATE: 20230918
